FAERS Safety Report 16589497 (Version 2)
Quarter: 2019Q3

REPORT INFORMATION
  Report Type: Spontaneous
  Country: FR (occurrence: FR)
  Receive Date: 20190718
  Receipt Date: 20190916
  Transmission Date: 20191004
  Serious: Yes (Hospitalization)
  Sender: FDA-Public Use
  Company Number: FR-ACCORD-138828

PATIENT
  Age: 66 Year
  Sex: Female

DRUGS (20)
  1. OXYCODONE/OXYCODONE HYDROCHLORIDE/OXYCODONE PECTINATE/OXYCODONE TEREPHTHALATE [Concomitant]
  2. ATORVASTATIN [Concomitant]
     Active Substance: ATORVASTATIN
     Route: 048
  3. LAROXYL [Concomitant]
     Active Substance: AMITRIPTYLINE HYDROCHLORIDE
     Route: 048
  4. OXYNORM [Concomitant]
     Active Substance: OXYCODONE HYDROCHLORIDE
  5. LOVENOX [Concomitant]
     Active Substance: ENOXAPARIN SODIUM
  6. LANTUS [Concomitant]
     Active Substance: INSULIN GLARGINE
  7. PANTOPRAZOLE [Suspect]
     Active Substance: PANTOPRAZOLE
     Indication: PRODUCT USED FOR UNKNOWN INDICATION
     Route: 048
     Dates: start: 20190406, end: 20190701
  8. NEFOPAM [Concomitant]
     Active Substance: NEFOPAM
  9. ZYMAD [Concomitant]
     Active Substance: CHOLECALCIFEROL
     Route: 048
  10. NOVORAPID [Concomitant]
     Active Substance: INSULIN ASPART
  11. RIFAMPICIN [Concomitant]
     Active Substance: RIFAMPIN
  12. PREGABALIN. [Suspect]
     Active Substance: PREGABALIN
     Indication: EPILEPSY
     Route: 048
     Dates: start: 20190406, end: 20190702
  13. DEPAKINE [Concomitant]
     Active Substance: VALPROATE SODIUM
     Indication: EPILEPSY
     Route: 048
     Dates: start: 20190406
  14. BRICANYL [Concomitant]
     Active Substance: TERBUTALINE SULFATE
  15. TEICOPLANIN [Concomitant]
     Active Substance: TEICOPLANIN
  16. PARACETAMOL [Concomitant]
     Active Substance: ACETAMINOPHEN
  17. LEVETIRACETAM. [Suspect]
     Active Substance: LEVETIRACETAM
     Indication: EPILEPSY
     Route: 048
     Dates: start: 20190406
  18. VENTOLIN [Concomitant]
     Active Substance: ALBUTEROL SULFATE
  19. ECONAZOLE. [Concomitant]
     Active Substance: ECONAZOLE NITRATE
     Route: 061
  20. SYMBICORT [Concomitant]
     Active Substance: BUDESONIDE\FORMOTEROL FUMARATE DIHYDRATE

REACTIONS (2)
  - Thrombocytopenia [Recovered/Resolved]
  - Folate deficiency [Recovered/Resolved]

NARRATIVE: CASE EVENT DATE: 201906
